FAERS Safety Report 18672498 (Version 1)
Quarter: 2020Q4

REPORT INFORMATION
  Report Type: Spontaneous
  Country: FR (occurrence: FR)
  Receive Date: 20201228
  Receipt Date: 20201228
  Transmission Date: 20210114
  Serious: Yes (Death, Other)
  Sender: FDA-Public Use
  Company Number: FR-PFIZER INC-2020506966

PATIENT
  Age: 70 Year
  Sex: Male
  Weight: 71.5 kg

DRUGS (8)
  1. MIDAZOLAM. [Suspect]
     Active Substance: MIDAZOLAM
     Indication: SEDATIVE THERAPY
     Dosage: 50 MG, 1X/DAY
     Route: 042
     Dates: start: 20201121, end: 20201205
  2. TAZOCILLINE [Suspect]
     Active Substance: PIPERACILLIN SODIUM\TAZOBACTAM SODIUM
     Indication: LUNG DISORDER
     Dosage: 12 G, 1X/DAY
     Route: 042
     Dates: start: 20201127, end: 20201204
  3. SUFENTANIL [Suspect]
     Active Substance: SUFENTANIL
     Indication: SEDATIVE THERAPY
     Dosage: 3 ML, FREQ:1 H
     Route: 042
     Dates: start: 20201121, end: 20201205
  4. FUROSEMIDE. [Suspect]
     Active Substance: FUROSEMIDE
     Indication: ACUTE KIDNEY INJURY
     Dosage: 125 MG, 1X/DAY
     Route: 042
     Dates: start: 20201127, end: 20201203
  5. LINEZOLIDE [Suspect]
     Active Substance: LINEZOLID
     Indication: LUNG DISORDER
     Dosage: 1200 MG, 1X/DAY
     Route: 042
     Dates: start: 20201127, end: 20201204
  6. VFEND [Suspect]
     Active Substance: VORICONAZOLE
     Indication: ASPERGILLUS INFECTION
     Dosage: 6 MG/KG, 1X/DAY
     Route: 042
     Dates: start: 20201202, end: 20201204
  7. TRACRIUM [Suspect]
     Active Substance: ATRACURIUM BESYLATE
     Indication: NEUROMUSCULAR BLOCKING THERAPY
     Dosage: 100 MG FREQ:1 H
     Route: 042
     Dates: start: 20201121, end: 20201205
  8. DUPHALAC [Suspect]
     Active Substance: LACTULOSE
     Indication: CONSTIPATION
     Dosage: 6 DF, 1X/DAY
     Route: 048
     Dates: start: 20201121, end: 20201205

REACTIONS (1)
  - Renal failure [Fatal]

NARRATIVE: CASE EVENT DATE: 20201202
